FAERS Safety Report 23618361 (Version 1)
Quarter: 2024Q1

REPORT INFORMATION
  Report Type: Spontaneous
  Country: US (occurrence: None)
  Receive Date: 20240311
  Receipt Date: 20240311
  Transmission Date: 20240410
  Serious: Yes (Death)
  Sender: FDA-Public Use
  Company Number: None

PATIENT
  Age: 66 Year
  Sex: Male
  Weight: 106.96 kg

DRUGS (2)
  1. TAGRISSO [Suspect]
     Active Substance: OSIMERTINIB
     Indication: Lung neoplasm malignant
     Dosage: FREQUENCY : DAILY;?
     Route: 048
     Dates: start: 20190918
  2. LOPERAMIDE [Concomitant]
     Active Substance: LOPERAMIDE

REACTIONS (10)
  - Back disorder [None]
  - Back pain [None]
  - Movement disorder [None]
  - Syncope [None]
  - Dizziness [None]
  - Loss of consciousness [None]
  - Decreased appetite [None]
  - Weight decreased [None]
  - Orthostatic hypotension [None]
  - Myocardial infarction [None]

NARRATIVE: CASE EVENT DATE: 20240215
